FAERS Safety Report 6752170-8 (Version None)
Quarter: 2010Q2

REPORT INFORMATION
  Report Type: 
  Country: None (occurrence: None)
  Receive Date: 20100602
  Receipt Date: 20090818
  Transmission Date: 20101027
  Serious: Yes (Congenital Anomaly)
  Sender: FDA-Public Use
  Company Number: US-BAYER-200923343NA

PATIENT
  Age: 49 Year
  Sex: Male

DRUGS (15)
  1. MAGNEVIST [Suspect]
     Indication: NUCLEAR MAGNETIC RESONANCE IMAGING
  2. OMNISCAN [Suspect]
     Indication: NUCLEAR MAGNETIC RESONANCE IMAGING
     Dates: start: 20040429
  3. OPTIMARK [Suspect]
     Indication: NUCLEAR MAGNETIC RESONANCE IMAGING
  4. MULTIHANCE [Suspect]
     Indication: NUCLEAR MAGNETIC RESONANCE IMAGING
  5. PROHANCE [Suspect]
     Indication: NUCLEAR MAGNETIC RESONANCE IMAGING
  6. UNKNOWN GBCA [Suspect]
     Indication: NUCLEAR MAGNETIC RESONANCE IMAGING
     Dates: start: 20040120, end: 20040120
  7. UNKNOWN GBCA [Suspect]
     Dates: start: 20040301, end: 20040301
  8. SENSIPAR [Concomitant]
  9. FAMOTIDINE [Concomitant]
  10. LEVOTHYROXINE SODIUM [Concomitant]
  11. RENAGEL [Concomitant]
  12. EPOGEN [Concomitant]
  13. IRON [Concomitant]
  14. VITAMIN TAB [Concomitant]
  15. BLOOD PRESSURE MEDICATIONS [Concomitant]

REACTIONS (5)
  - EXTREMITY CONTRACTURE [None]
  - JOINT CONTRACTURE [None]
  - NEPHROGENIC SYSTEMIC FIBROSIS [None]
  - PAIN [None]
  - SKIN INDURATION [None]
